FAERS Safety Report 6586219-2 (Version None)
Quarter: 2010Q1

REPORT INFORMATION
  Report Type: 
  Country: None (occurrence: None)
  Receive Date: 20100216
  Receipt Date: 20100216
  Transmission Date: 20100710
  Serious: Yes (Death)
  Sender: FDA-Public Use
  Company Number: None

PATIENT
  Sex: Female
  Weight: 55 kg

DRUGS (13)
  1. TARCEVA [Suspect]
     Indication: NON-SMALL CELL LUNG CANCER
     Dosage: 150 MG DAILY ORAL
     Route: 048
     Dates: start: 20090729, end: 20091024
  2. ZOSYN [Concomitant]
  3. LOVENOX [Concomitant]
  4. FLUTICASONE PROPIONATE [Concomitant]
  5. COMBIVENT [Concomitant]
  6. OXYCONTIN [Concomitant]
  7. OXYCODONE [Concomitant]
  8. DILAUDID [Concomitant]
  9. ATIVAN [Concomitant]
  10. COLACE [Concomitant]
  11. SENNA [Concomitant]
  12. POLYTHYLENE GLYCOL [Concomitant]
  13. NICOTINE [Concomitant]

REACTIONS (25)
  - BRADYCARDIA [None]
  - BRONCHOSCOPY ABNORMAL [None]
  - CANDIDIASIS [None]
  - CARDIAC ARREST [None]
  - CARDIOGENIC SHOCK [None]
  - CARDIOMYOPATHY [None]
  - EJECTION FRACTION DECREASED [None]
  - ENTEROCOCCAL INFECTION [None]
  - HYPOTENSION [None]
  - LEFT VENTRICULAR DYSFUNCTION [None]
  - LUNG CANCER METASTATIC [None]
  - MALIGNANT PLEURAL EFFUSION [None]
  - METASTASES TO HEART [None]
  - MULTI-ORGAN FAILURE [None]
  - NODAL ARRHYTHMIA [None]
  - NODAL RHYTHM [None]
  - PLEURAL EFFUSION [None]
  - PNEUMONIA [None]
  - RESPIRATORY DISTRESS [None]
  - RESPIRATORY FAILURE [None]
  - RIGHT VENTRICULAR DYSFUNCTION [None]
  - SEPSIS [None]
  - SINUS TACHYCARDIA [None]
  - SPUTUM CULTURE POSITIVE [None]
  - UNRESPONSIVE TO STIMULI [None]
